FAERS Safety Report 20950139 (Version 1)
Quarter: 2022Q2

REPORT INFORMATION
  Report Type: Spontaneous
  Country: US (occurrence: None)
  Receive Date: 20220610
  Receipt Date: 20220610
  Transmission Date: 20220720
  Serious: Yes (Hospitalization)
  Sender: FDA-Public Use
  Company Number: None

PATIENT
  Sex: Male

DRUGS (1)
  1. CAPECITABINE [Suspect]
     Active Substance: CAPECITABINE
     Indication: Small intestine carcinoma
     Dosage: 1000 MG   ORAL??TWICE DAILY FOR 7 DAYS ON AND 7 DAYS OFF.?
     Route: 048
     Dates: start: 202009

REACTIONS (6)
  - Duodenal obstruction [None]
  - Biliary obstruction [None]
  - Vomiting [None]
  - Weight decreased [None]
  - Neoplasm [None]
  - Therapy interrupted [None]
